FAERS Safety Report 10530471 (Version 1)
Quarter: 2014Q4

REPORT INFORMATION
  Report Type: Spontaneous
  Country: US (occurrence: None)
  Receive Date: 20141020
  Receipt Date: 20141020
  Transmission Date: 20150528
  Serious: Yes (Life-Threatening)
  Sender: FDA-Public Use
  Company Number: None

PATIENT
  Age: 80 Year
  Sex: Female
  Weight: 72.58 kg

DRUGS (2)
  1. ESTRACE [Suspect]
     Active Substance: ESTRADIOL
     Indication: DYSURIA
     Route: 067
     Dates: start: 20141006, end: 20141013
  2. ESTRACE [Suspect]
     Active Substance: ESTRADIOL
     Indication: ATROPHIC VULVOVAGINITIS
     Route: 067
     Dates: start: 20141006, end: 20141013

REACTIONS (2)
  - Migraine [None]
  - Breast disorder [None]

NARRATIVE: CASE EVENT DATE: 20141013
